FAERS Safety Report 7675396-8 (Version None)
Quarter: 2011Q3

REPORT INFORMATION
  Report Type: 
  Country: None (occurrence: None)
  Receive Date: 20110810
  Receipt Date: 20110809
  Transmission Date: 20111222
  Serious: Yes (Hospitalization, Other)
  Sender: FDA-Public Use
  Company Number: CA-ABBOTT-11P-028-0845068-00

PATIENT
  Sex: Female
  Weight: 73.094 kg

DRUGS (12)
  1. HUMIRA [Suspect]
     Route: 058
     Dates: start: 20110101
  2. VITAMIN B-12 [Concomitant]
     Indication: CROHN'S DISEASE
     Dosage: MONTHLY
     Route: 030
     Dates: start: 20090101
  3. MESALAMINE [Concomitant]
     Indication: CROHN'S DISEASE
     Route: 048
     Dates: start: 20070101
  4. PAXIL [Concomitant]
     Indication: DEPRESSION
  5. PANTOPRAZOLE [Concomitant]
     Indication: GASTROOESOPHAGEAL REFLUX DISEASE
     Route: 048
     Dates: start: 20110704
  6. PAXIL [Concomitant]
     Indication: PANIC ATTACK
  7. PAXIL [Concomitant]
     Indication: ANXIETY
     Route: 048
     Dates: start: 19980101
  8. HUMIRA [Suspect]
     Indication: CROHN'S DISEASE
     Route: 058
     Dates: start: 20100125, end: 20110101
  9. VITAMIN B-12 [Concomitant]
     Indication: PANIC ATTACK
  10. IMURAN [Concomitant]
     Indication: CROHN'S DISEASE
     Route: 048
     Dates: start: 20070101
  11. VITAMIN B-12 [Concomitant]
     Indication: DEPRESSION
  12. VITAMIN B-12 [Concomitant]
     Indication: ANXIETY

REACTIONS (2)
  - CROHN'S DISEASE [None]
  - INTESTINAL OBSTRUCTION [None]
